FAERS Safety Report 8611394-5 (Version None)
Quarter: 2012Q3

REPORT INFORMATION
  Report Type: 
  Country: None (occurrence: None)
  Receive Date: 20120822
  Receipt Date: 20120817
  Transmission Date: 20120928
  Serious: Yes (Other)
  Sender: FDA-Public Use
  Company Number: GB-PFIZER INC-2012161106

PATIENT
  Age: 79 Year
  Sex: Male
  Weight: 66.667 kg

DRUGS (6)
  1. BUMETANIDE [Concomitant]
     Dosage: 1 MG, 2X/DAY
     Route: 048
  2. LEVOTHYROXINE [Concomitant]
     Dosage: 100 UG, UNK
     Route: 048
  3. RAMIPRIL [Concomitant]
     Dosage: 5 MG, 1X/DAY
     Route: 048
  4. WARFARIN [Concomitant]
     Dosage: VARIABLE DOSE
     Route: 048
  5. SIMVASTATIN [Concomitant]
     Dosage: 40 MG, 1X/DAY
     Route: 048
  6. INSPRA [Suspect]
     Dosage: 25 MG DAILY
     Route: 048
     Dates: start: 20120401, end: 20120629

REACTIONS (4)
  - DRY SKIN [None]
  - SKIN EXFOLIATION [None]
  - RASH GENERALISED [None]
  - RASH ERYTHEMATOUS [None]
